FAERS Safety Report 4304164-X (Version None)
Quarter: 2004Q1

REPORT INFORMATION
  Report Type: 
  Country: None (occurrence: None)
  Receive Date: 20040225
  Receipt Date: 20040223
  Transmission Date: 20041129
  Serious: Yes (Other)
  Sender: FDA-Public Use
  Company Number: 000875

PATIENT
  Age: 26 Year
  Sex: Female

DRUGS (4)
  1. TRI-SPRINTEC (NORGESTIMATE, ETHINYLESTRADIOL) TABLET [Suspect]
     Indication: ORAL CONTRACEPTION
     Dosage: 1.00 TABLET, QD, ORAL
     Route: 048
     Dates: start: 20040101, end: 20040217
  2. RETIN A (TRETINOIN) [Concomitant]
  3. ZOLOFT [Concomitant]
  4. SULFACETAMIDE SODIUM [Concomitant]

REACTIONS (3)
  - ABORTION SPONTANEOUS [None]
  - PREGNANCY ON ORAL CONTRACEPTIVE [None]
  - UNINTENDED PREGNANCY [None]
